FAERS Safety Report 4859812-2 (Version None)
Quarter: 2005Q4

REPORT INFORMATION
  Report Type: 
  Country: None (occurrence: None)
  Receive Date: 20051219
  Receipt Date: 20051102
  Transmission Date: 20060501
  Serious: Yes (Other)
  Sender: FDA-Public Use
  Company Number: 2005JP002103

PATIENT
  Age: 24 Year
  Sex: Male

DRUGS (5)
  1. CEFAZOLIN [Suspect]
     Indication: DRUG USE FOR UNKNOWN INDICATION
     Route: 042
  2. VECURONIUM BROMIDE [Suspect]
     Indication: DRUG USE FOR UNKNOWN INDICATION
     Route: 042
  3. FENTANYL CITRATE [Concomitant]
     Indication: DRUG USE FOR UNKNOWN INDICATION
     Route: 065
  4. PROPOFOL [Concomitant]
     Indication: DRUG USE FOR UNKNOWN INDICATION
     Route: 065
  5. SEVOFLURANE [Concomitant]
     Indication: DRUG USE FOR UNKNOWN INDICATION
     Route: 065

REACTIONS (5)
  - ANAPHYLACTIC SHOCK [None]
  - BLOOD PRESSURE SYSTOLIC DECREASED [None]
  - GENERALISED ERYTHEMA [None]
  - OXYGEN SATURATION DECREASED [None]
  - PEAK EXPIRATORY FLOW RATE INCREASED [None]
